FAERS Safety Report 4799722-2 (Version None)
Quarter: 2005Q4

REPORT INFORMATION
  Report Type: 
  Country: None (occurrence: None)
  Receive Date: 20051006
  Receipt Date: 20051006
  Transmission Date: 20060501
  Serious: No
  Sender: FDA-Public Use
  Company Number: None

PATIENT
  Sex: Male

DRUGS (8)
  1. LIDOCAINE [Suspect]
     Indication: ELECTROMECHANICAL DISSOCIATION
     Dosage: 2 MG/MIN
  2. LIDOCAINE [Suspect]
     Indication: VENTRICULAR TACHYCARDIA
     Dosage: 2 MG/MIN
  3. MEXILETINE [Suspect]
     Indication: VENTRICULAR TACHYCARDIA
     Dosage: 150 MG PO Q 6 HOURS
     Route: 048
  4. CLOPIDOGREL [Concomitant]
  5. NTG OINTMENT [Concomitant]
  6. ASPIRIN [Concomitant]
  7. METOCLOPRAMIDE [Concomitant]
  8. PARICALCITRIOL [Concomitant]

REACTIONS (3)
  - AGITATION [None]
  - CARDIO-RESPIRATORY ARREST [None]
  - MENTAL STATUS CHANGES [None]
